FAERS Safety Report 4551149-4 (Version None)
Quarter: 2005Q1

REPORT INFORMATION
  Report Type: 
  Country: None (occurrence: None)
  Receive Date: 20050107
  Receipt Date: 20041218
  Transmission Date: 20050727
  Serious: Yes (Other)
  Sender: FDA-Public Use
  Company Number: ENTC2004-0240

PATIENT

DRUGS (1)
  1. STALEVO (UNKNOWN) (LEVODOPA, CARBIDOPA, ENTACAPONE) [Suspect]

REACTIONS (1)
  - PULMONARY FIBROSIS [None]
